FAERS Safety Report 5693019-4 (Version None)
Quarter: 2008Q2

REPORT INFORMATION
  Report Type: 
  Country: None (occurrence: None)
  Receive Date: 20080401
  Receipt Date: 20080401
  Transmission Date: 20081010
  Serious: Yes (Disabling)
  Sender: FDA-Public Use
  Company Number: None

PATIENT
  Age: 73 Year
  Sex: Male
  Weight: 36.9228 kg

DRUGS (1)
  1. NAFCILLIN SODIUM [Suspect]
     Indication: STAPHYLOCOCCAL ABSCESS
     Dosage: 2G Q4H IV
     Route: 042

REACTIONS (1)
  - JAUNDICE CHOLESTATIC [None]
